FAERS Safety Report 9387495 (Version 2)
Quarter: 2013Q3

REPORT INFORMATION
  Report Type: Spontaneous
  Country: US (occurrence: None)
  Receive Date: 20130702
  Receipt Date: 20130705
  Transmission Date: 20140515
  Serious: Yes (Other)
  Sender: FDA-Public Use
  Company Number: USA/USA/13/0030301

PATIENT
  Age: 59 Year
  Sex: Female
  Weight: 104.33 kg

DRUGS (6)
  1. GLIMEPIRIDE [Suspect]
     Indication: DIABETES MELLITUS
     Route: 048
  2. NAPROXEN(NAPROXEN) [Concomitant]
  3. FLUOXETINE(FLUOXETINE) [Concomitant]
  4. TRAZODONE(TRAZODONE) [Concomitant]
  5. LEVOTHYROXINE(LEVOTHYROXINE) [Concomitant]
  6. CYCLOBENZAPRINE(CYCLOBENZAPRINE) [Concomitant]

REACTIONS (1)
  - Adrenal mass [None]
